FAERS Safety Report 21464806 (Version 1)
Quarter: 2022Q4

REPORT INFORMATION
  Report Type: Spontaneous
  Country: BR (occurrence: BR)
  Receive Date: 20221017
  Receipt Date: 20221017
  Transmission Date: 20230113
  Serious: Yes (Other)
  Sender: FDA-Public Use
  Company Number: BR-CELLTRION INC.-2022BR016727

PATIENT

DRUGS (6)
  1. TRUXIMA [Suspect]
     Active Substance: RITUXIMAB-ABBS
     Indication: Mantle cell lymphoma stage IV
     Dosage: 862 MG
     Dates: start: 20220906
  2. OXALIPLATIN [Concomitant]
     Active Substance: OXALIPLATIN
     Dosage: 300 MG
     Route: 042
     Dates: start: 20220906
  3. CYTARABINE [Concomitant]
     Active Substance: CYTARABINE
     Dosage: 4600 MG
     Route: 042
     Dates: start: 20220906
  4. DEXAMETHASONE [Concomitant]
     Active Substance: DEXAMETHASONE
     Indication: Premedication
     Dosage: 2 D1
     Route: 042
  5. SODIUM CHLORIDE [Concomitant]
     Active Substance: SODIUM CHLORIDE
     Indication: Premedication
     Dosage: 250 ML 2 D1; FREQ: 1 CYCLE
     Route: 042
  6. ONDANSETRON [Concomitant]
     Active Substance: ONDANSETRON
     Indication: Premedication
     Dosage: 8 MG 2 D1; FREQ: 1 CYCLE
     Route: 042

REACTIONS (7)
  - Hypertension [Recovering/Resolving]
  - Hypoxia [Recovering/Resolving]
  - Tremor [Recovering/Resolving]
  - Tachycardia [Recovering/Resolving]
  - Pyrexia [Recovering/Resolving]
  - Dyspnoea [Recovering/Resolving]
  - Off label use [Unknown]

NARRATIVE: CASE EVENT DATE: 20220906
